FAERS Safety Report 6109985-9 (Version None)
Quarter: 2009Q1

REPORT INFORMATION
  Report Type: 
  Country: None (occurrence: None)
  Receive Date: 20090310
  Receipt Date: 20081030
  Transmission Date: 20090719
  Serious: No
  Sender: FDA-Public Use
  Company Number: A0754217A

PATIENT
  Age: 45 Year
  Sex: Female

DRUGS (2)
  1. NICORETTE (MINT) [Suspect]
     Dates: start: 20081026
  2. VITAMIN [Concomitant]

REACTIONS (1)
  - TONGUE DISCOLOURATION [None]
